FAERS Safety Report 6608956-3 (Version None)
Quarter: 2010Q1

REPORT INFORMATION
  Report Type: 
  Country: None (occurrence: None)
  Receive Date: 20100301
  Receipt Date: 20100209
  Transmission Date: 20100710
  Serious: No
  Sender: FDA-Public Use
  Company Number: US-ROXANE LABORATORIES, INC.-2010-RO-00151RO

PATIENT
  Sex: Female

DRUGS (1)
  1. AZATHIOPRINE [Suspect]

REACTIONS (1)
  - MALABSORPTION [None]
